FAERS Safety Report 17478511 (Version 1)
Quarter: 2020Q1

REPORT INFORMATION
  Report Type: Spontaneous
  Country: BR (occurrence: BR)
  Receive Date: 20200228
  Receipt Date: 20200228
  Transmission Date: 20200409
  Serious: Yes (Other)
  Sender: FDA-Public Use
  Company Number: BR-JNJFOC-20191220241

PATIENT
  Age: 37 Year
  Sex: Female
  Weight: 70 kg

DRUGS (5)
  1. SIMPONI [Suspect]
     Active Substance: GOLIMUMAB
     Route: 058
     Dates: start: 2019
  2. METHOTREXATE. [Concomitant]
     Active Substance: METHOTREXATE
     Dosage: TIGHTENED
  3. TRAMADOL. [Concomitant]
     Active Substance: TRAMADOL
     Dosage: (BUT NOT NEEDED TO USE)
  4. NAPROXEN. [Concomitant]
     Active Substance: NAPROXEN
     Dosage: WHEN HAS LIGHTEST CRISIS
  5. SIMPONI [Suspect]
     Active Substance: GOLIMUMAB
     Indication: ANKYLOSING SPONDYLITIS
     Dosage: USED 2 YEARS AGO
     Route: 058
     Dates: end: 2017

REACTIONS (1)
  - Infectious mononucleosis [Unknown]

NARRATIVE: CASE EVENT DATE: 20191210
